FAERS Safety Report 19204196 (Version 2)
Quarter: 2021Q2

REPORT INFORMATION
  Report Type: Spontaneous
  Country: None (occurrence: US)
  Receive Date: 20210503
  Receipt Date: 20210525
  Transmission Date: 20210717
  Serious: No
  Sender: FDA-Public Use
  Company Number: US-CYCLE PHARMACEUTICALS LTD-2021-CYC-000013

PATIENT
  Age: 5 Month
  Sex: Male

DRUGS (1)
  1. NITYR [Suspect]
     Active Substance: NITISINONE
     Indication: TYROSINAEMIA
     Dosage: 3 MG, BID
     Route: 048
     Dates: start: 20201028

REACTIONS (1)
  - Off label use [Not Recovered/Not Resolved]

NARRATIVE: CASE EVENT DATE: 20210308
